FAERS Safety Report 4479060-8 (Version None)
Quarter: 2004Q4

REPORT INFORMATION
  Report Type: 
  Country: None (occurrence: None)
  Receive Date: 20040923
  Receipt Date: 20040713
  Transmission Date: 20050328
  Serious: No
  Sender: FDA-Public Use
  Company Number: 207815

PATIENT
  Age: 66 Year
  Sex: Male
  Weight: 87.5 kg

DRUGS (4)
  1. AVASTIN [Suspect]
     Indication: COLON CANCER METASTATIC
     Dosage: 5 MG/KG, Q3W, INTRAVENOUS
     Route: 042
     Dates: start: 20040413
  2. MONOPRIL [Concomitant]
  3. ATENOLOL [Concomitant]
  4. NORVASC [Concomitant]

REACTIONS (1)
  - PROTEINURIA [None]
